FAERS Safety Report 9775129 (Version 1)
Quarter: 2013Q4

REPORT INFORMATION
  Report Type: Spontaneous
  Country: US (occurrence: US)
  Receive Date: 20131220
  Receipt Date: 20131220
  Transmission Date: 20140711
  Serious: Yes (Other)
  Sender: FDA-Public Use
  Company Number: US-GILEAD-2009-0025098

PATIENT
  Sex: Male

DRUGS (2)
  1. VISTIDE [Suspect]
     Indication: ADENOVIRUS INFECTION
  2. VISTIDE [Suspect]

REACTIONS (3)
  - Hypotension [Unknown]
  - Drug ineffective for unapproved indication [Unknown]
  - Pyrexia [Unknown]
